FAERS Safety Report 11061248 (Version 1)
Quarter: 2015Q2

REPORT INFORMATION
  Report Type: Spontaneous
  Country: US (occurrence: US)
  Receive Date: 20150424
  Receipt Date: 20150424
  Transmission Date: 20150821
  Serious: No
  Sender: FDA-Public Use
  Company Number: US-TEVA-541862USA

PATIENT
  Sex: Male

DRUGS (9)
  1. ACTIGALL [Concomitant]
     Active Substance: URSODIOL
  2. DECADRON [Concomitant]
     Active Substance: DEXAMETHASONE
  3. ACICLOVIR [Suspect]
     Active Substance: ACYCLOVIR
     Route: 065
  4. KEPPRA [Concomitant]
     Active Substance: LEVETIRACETAM
  5. ZOFRAN [Concomitant]
     Active Substance: ONDANSETRON HYDROCHLORIDE
  6. ZANTAC [Concomitant]
     Active Substance: RANITIDINE HYDROCHLORIDE
  7. FLUCONAZOLE. [Concomitant]
     Active Substance: FLUCONAZOLE
  8. CLINDAMYCIN [Concomitant]
     Active Substance: CLINDAMYCIN\CLINDAMYCIN PHOSPHATE
  9. BUSULFAN [Concomitant]
     Active Substance: BUSULFAN

REACTIONS (3)
  - Asthenia [Unknown]
  - Fatigue [Unknown]
  - Mood altered [Unknown]
